FAERS Safety Report 4964860-8 (Version None)
Quarter: 2006Q1

REPORT INFORMATION
  Report Type: 
  Country: None (occurrence: None)
  Receive Date: 20060130
  Receipt Date: 20050926
  Transmission Date: 20060701
  Serious: Yes (Other)
  Sender: FDA-Public Use
  Company Number: 143253USA

PATIENT
  Age: 59 Year
  Sex: Male

DRUGS (7)
  1. COPAXONE [Suspect]
     Indication: MULTIPLE SCLEROSIS
     Dates: start: 20011221
  2. ZANAFLEX [Concomitant]
  3. BACLOFEN [Concomitant]
  4. DIAZEPAM [Concomitant]
  5. PAXIL [Concomitant]
  6. SYNTHROID [Concomitant]
  7. LIPITOR [Concomitant]

REACTIONS (2)
  - HEPATOMEGALY [None]
  - SPLENOMEGALY [None]
